FAERS Safety Report 8527723 (Version 4)
Quarter: 2012Q4

REPORT INFORMATION
  Report Type: 
  Country: US (occurrence: US)
  Receive Date: 20120424
  Receipt Date: 20121119
  Transmission Date: 20130627
  Serious: Yes (Hospitalization)
  Sender: FDA-Public Use
  Company Number: US-ACTELION-A-NJ2012-64226

PATIENT
  Age: 51 Year
  Sex: Female

DRUGS (6)
  1. TRACLEER [Suspect]
     Indication: PULMONARY ARTERIAL HYPERTENSION
     Dosage: 125 mg, bid
     Route: 048
  2. TRACLEER [Suspect]
     Dosage: 62.5 mg, bid
     Route: 048
     Dates: start: 200206
  3. ADCIRCA [Concomitant]
  4. TYVASO [Concomitant]
  5. COUMADIN [Concomitant]
  6. DIGOXIN [Concomitant]

REACTIONS (3)
  - Breast disorder [Unknown]
  - Breast operation [Unknown]
  - Drug dose omission [Unknown]
